FAERS Safety Report 6219967-4 (Version None)
Quarter: 2009Q2

REPORT INFORMATION
  Report Type: 
  Country: None (occurrence: None)
  Receive Date: 20090609
  Receipt Date: 20090526
  Transmission Date: 20091009
  Serious: Yes (Death, Other)
  Sender: FDA-Public Use
  Company Number: US-PFIZER INC-2009205567

PATIENT
  Sex: Male

DRUGS (2)
  1. REVATIO [Suspect]
     Indication: PULMONARY HYPERTENSION
     Dosage: 20 MG, 3X/DAY
  2. WARFARIN SODIUM [Suspect]

REACTIONS (5)
  - BLOOD CREATININE INCREASED [None]
  - COAGULOPATHY [None]
  - DYSPNOEA [None]
  - GENERALISED OEDEMA [None]
  - PULMONARY HYPERTENSION [None]
